FAERS Safety Report 13033307 (Version 2)
Quarter: 2017Q1

REPORT INFORMATION
  Report Type: Spontaneous
  Country: US (occurrence: US)
  Receive Date: 20161216
  Receipt Date: 20170112
  Transmission Date: 20170428
  Serious: Yes (Hospitalization)
  Sender: FDA-Public Use
  Company Number: US-RELYPSA-RLY2016004138

PATIENT
  Age: 67 Year
  Sex: Female

DRUGS (28)
  1. LANTUS [Concomitant]
     Active Substance: INSULIN GLARGINE
  2. HYDRALAZINE HCL [Concomitant]
     Active Substance: HYDRALAZINE HYDROCHLORIDE
  3. LASIX [Concomitant]
     Active Substance: FUROSEMIDE
  4. PROCRIT [Concomitant]
     Active Substance: ERYTHROPOIETIN
  5. ROCALTROL [Concomitant]
     Active Substance: CALCITRIOL
  6. COMBIGAN [Concomitant]
     Active Substance: BRIMONIDINE TARTRATE\TIMOLOL MALEATE
  7. LACTULOSE. [Concomitant]
     Active Substance: LACTULOSE
  8. LISINOPRIL. [Concomitant]
     Active Substance: LISINOPRIL
  9. NEXIUM [Concomitant]
     Active Substance: ESOMEPRAZOLE MAGNESIUM
  10. ZANTAC [Concomitant]
     Active Substance: RANITIDINE HYDROCHLORIDE
  11. TRIAMCINOLONE ACETONIDE. [Concomitant]
     Active Substance: TRIAMCINOLONE ACETONIDE
  12. VELTASSA [Suspect]
     Active Substance: PATIROMER
     Indication: HYPERKALAEMIA
     Dosage: 8.4 G, QD
     Route: 048
     Dates: start: 20160329
  13. AMLODIPINE BESYLATE. [Concomitant]
     Active Substance: AMLODIPINE BESYLATE
  14. LEVOTHYROXINE SODIUM. [Concomitant]
     Active Substance: LEVOTHYROXINE SODIUM
  15. LYRICA [Concomitant]
     Active Substance: PREGABALIN
  16. MULTIVITAMIN                       /07504101/ [Concomitant]
     Active Substance: VITAMINS
  17. PREDNISOLONE ACETATE. [Concomitant]
     Active Substance: PREDNISOLONE ACETATE
  18. TYLENOL [Concomitant]
     Active Substance: ACETAMINOPHEN
  19. MULTIVITAMINS [Concomitant]
     Active Substance: VITAMINS
  20. TRAMADOL HCL [Concomitant]
     Active Substance: TRAMADOL HYDROCHLORIDE
  21. ZYLET [Concomitant]
     Active Substance: LOTEPREDNOL ETABONATE\TOBRAMYCIN
  22. AMITRIPTYLINE HCL [Concomitant]
     Active Substance: AMITRIPTYLINE
  23. ASPIRIN                            /00002701/ [Concomitant]
     Active Substance: ASPIRIN
  24. CRESTOR [Concomitant]
     Active Substance: ROSUVASTATIN CALCIUM
  25. DUREZOL [Concomitant]
     Active Substance: DIFLUPREDNATE
  26. HUMALOG [Concomitant]
     Active Substance: INSULIN LISPRO
  27. ATROPINE SULFATE. [Concomitant]
     Active Substance: ATROPINE SULFATE
  28. FLUOCINONIDE. [Concomitant]
     Active Substance: FLUOCINONIDE

REACTIONS (4)
  - Blood potassium decreased [Recovering/Resolving]
  - Chronic kidney disease [Unknown]
  - Renal failure [Recovering/Resolving]
  - Cardiac failure congestive [Unknown]

NARRATIVE: CASE EVENT DATE: 20161121
